FAERS Safety Report 22214881 (Version 1)
Quarter: 2023Q2

REPORT INFORMATION
  Report Type: Spontaneous
  Country: US (occurrence: US)
  Receive Date: 20230415
  Receipt Date: 20230415
  Transmission Date: 20230722
  Serious: No
  Sender: FDA-Public Use
  Company Number: US-JNJFOC-20190626232

PATIENT
  Age: 33 Year
  Sex: Male
  Weight: 93.070 kg

DRUGS (1)
  1. MENS ROGAINE EXTRA STRENGTH [Suspect]
     Active Substance: MINOXIDIL
     Indication: Alopecia
     Dosage: SILVER DOLLAR
     Route: 061

REACTIONS (1)
  - Incorrect dose administered [Unknown]
